FAERS Safety Report 13805802 (Version 2)
Quarter: 2017Q3

REPORT INFORMATION
  Report Type: Spontaneous
  Country: CH (occurrence: CH)
  Receive Date: 20170728
  Receipt Date: 20170828
  Transmission Date: 20171127
  Serious: Yes (Congenital Anomaly, Other)
  Sender: FDA-Public Use
  Company Number: CH-PFIZER INC-2017325205

PATIENT
  Sex: Female
  Weight: 1.7 kg

DRUGS (5)
  1. IMOVANE [Suspect]
     Active Substance: ZOPICLONE
     Indication: INSOMNIA
     Dosage: 7.5MG 1X/DAY
     Route: 064
     Dates: end: 20160525
  2. LYRICA [Suspect]
     Active Substance: PREGABALIN
     Indication: ANXIETY
     Dosage: 75MG 1X/DAY
     Route: 064
     Dates: end: 20160525
  3. RHOPHYLAC [Concomitant]
     Active Substance: HUMAN RHO(D) IMMUNE GLOBULIN
     Indication: ALLOIMMUNISATION
     Dosage: UNK
     Route: 064
     Dates: start: 20161111, end: 20161111
  4. TEMESTA [Suspect]
     Active Substance: LORAZEPAM
     Indication: ANXIETY
     Dosage: 1MG 4X/DAY
     Route: 064
     Dates: end: 20160525
  5. REMERON [Suspect]
     Active Substance: MIRTAZAPINE
     Indication: DEPRESSION
     Dosage: 45MG 1X/DAY
     Route: 064
     Dates: end: 20160525

REACTIONS (8)
  - Ventricular septal defect [Recovered/Resolved]
  - Cardiomegaly [Unknown]
  - Maternal exposure during pregnancy [Recovered/Resolved]
  - Atrial septal defect [Unknown]
  - Pulmonary arterial hypertension [Unknown]
  - Left-to-right cardiac shunt [Unknown]
  - Foetal growth restriction [Unknown]
  - Hyperbilirubinaemia neonatal [Recovered/Resolved]

NARRATIVE: CASE EVENT DATE: 20160514
